FAERS Safety Report 18612267 (Version 1)
Quarter: 2020Q4

REPORT INFORMATION
  Report Type: Spontaneous
  Country: ES (occurrence: ES)
  Receive Date: 20201214
  Receipt Date: 20201214
  Transmission Date: 20210114
  Serious: Yes (Other)
  Sender: FDA-Public Use
  Company Number: ES-MYLANLABS-2020M1101136

PATIENT
  Age: 16 Year
  Sex: Male

DRUGS (1)
  1. LEVETIRACETAM. [Suspect]
     Active Substance: LEVETIRACETAM
     Indication: PARTIAL SEIZURES
     Dosage: UNK

REACTIONS (9)
  - Disturbance in attention [Unknown]
  - Somnolence [Unknown]
  - Seizure [Recovering/Resolving]
  - Vomiting [Unknown]
  - Headache [Unknown]
  - Feeling hot [Unknown]
  - Obesity [Unknown]
  - Nausea [Unknown]
  - Dizziness [Unknown]
